FAERS Safety Report 22151768 (Version 1)
Quarter: 2023Q1

REPORT INFORMATION
  Report Type: Spontaneous
  Country: US (occurrence: None)
  Receive Date: 20230329
  Receipt Date: 20230329
  Transmission Date: 20230418
  Serious: Yes (Disabling)
  Sender: FDA-Public Use
  Company Number: None

PATIENT
  Age: 71 Year
  Sex: Female
  Weight: 51.75 kg

DRUGS (1)
  1. FENTANYL TRANSDERMAL SYSTEM [Suspect]
     Active Substance: FENTANYL
     Indication: Pain
     Dosage: OTHER QUANTITY : 5 PATCH(ES);?OTHER FREQUENCY : EVERY 72 HOURS;?
     Route: 062

REACTIONS (5)
  - Product substitution issue [None]
  - Withdrawal syndrome [None]
  - Inadequate analgesia [None]
  - Feeling abnormal [None]
  - Product quality issue [None]

NARRATIVE: CASE EVENT DATE: 20221228
